FAERS Safety Report 13489653 (Version 1)
Quarter: 2017Q2

REPORT INFORMATION
  Report Type: Report from Study
  Country: US (occurrence: US)
  Receive Date: 20170427
  Receipt Date: 20170427
  Transmission Date: 20170830
  Serious: Yes (Other)
  Sender: FDA-Public Use
  Company Number: US-AMGEN-USASL2017026854

PATIENT
  Age: 45 Year
  Sex: Female
  Weight: 97.3 kg

DRUGS (31)
  1. GRALISE [Concomitant]
     Active Substance: GABAPENTIN
  2. SYNTHROID [Concomitant]
     Active Substance: LEVOTHYROXINE SODIUM
     Dosage: 115 MUG, UNK
     Route: 048
  3. UROCIT-K [Concomitant]
     Active Substance: POTASSIUM CITRATE
     Indication: RENAL LITHIASIS PROPHYLAXIS
     Dosage: 10 MG, QD
  4. PROLIA [Suspect]
     Active Substance: DENOSUMAB
     Indication: PRODUCT USED FOR UNKNOWN INDICATION
     Dosage: 60 MG, Q6MO
     Route: 065
     Dates: start: 201305
  5. BYSTOLIC [Concomitant]
     Active Substance: NEBIVOLOL HYDROCHLORIDE
  6. METFORMIN [Concomitant]
     Active Substance: METFORMIN HYDROCHLORIDE
  7. BENADRYL [Concomitant]
     Active Substance: DIPHENHYDRAMINE HYDROCHLORIDE
     Dosage: 50 MG, UNK
     Route: 048
  8. CITRUCEL [Concomitant]
     Active Substance: METHYLCELLULOSE (4000 MPA.S)
     Dosage: 1 DF, QD
     Route: 048
  9. PROBIOTIC [Concomitant]
     Active Substance: PROBIOTICS NOS
     Dosage: 1 DF, QD
     Route: 048
  10. VITAMIN D [Concomitant]
     Active Substance: CHOLECALCIFEROL
     Dosage: 1 DF, QD
     Route: 048
  11. XGEVA [Suspect]
     Active Substance: DENOSUMAB
     Indication: PRODUCT USED FOR UNKNOWN INDICATION
     Dosage: UNK UNK, QMO
     Route: 065
     Dates: start: 2011, end: 2012
  12. MELOXICAM. [Concomitant]
     Active Substance: MELOXICAM
  13. CALCIUM [Concomitant]
     Active Substance: CALCIUM
     Dosage: 1 DF, QD
     Route: 048
  14. GLUCOPHAGE [Concomitant]
     Active Substance: METFORMIN HYDROCHLORIDE
     Dosage: 1 DF, BID
     Route: 048
  15. MOBIC [Concomitant]
     Active Substance: MELOXICAM
     Indication: PAIN
     Dosage: 7.5 MG, BID
     Route: 048
  16. MOBIC [Concomitant]
     Active Substance: MELOXICAM
     Indication: MUSCLE SPASMS
  17. TURMERIC [Concomitant]
     Active Substance: HERBALS\TURMERIC
     Indication: RENAL LITHIASIS PROPHYLAXIS
     Dosage: 10 UNK, UNK
  18. AMBIEN CR [Concomitant]
     Active Substance: ZOLPIDEM TARTRATE
     Indication: INSOMNIA
     Dosage: 12.5 MG, QD
     Route: 048
  19. SINGULAIR [Concomitant]
     Active Substance: MONTELUKAST SODIUM
     Dosage: 10 MG, QD
     Route: 048
  20. DEXILANT [Concomitant]
     Active Substance: DEXLANSOPRAZOLE
  21. CINNAMON. [Concomitant]
     Active Substance: CINNAMON
     Dosage: 1 DF, QD
     Route: 048
  22. PRENATAL VITAMINS [Concomitant]
     Active Substance: VITAMINS
     Dosage: 1 DF, QD
     Route: 048
  23. SENOKOT-S [Concomitant]
     Active Substance: DOCUSATE SODIUM\SENNOSIDES
     Dosage: 2 DF, BID
     Route: 048
  24. HCTZ [Concomitant]
     Active Substance: HYDROCHLOROTHIAZIDE
     Indication: BLOOD PRESSURE MEASUREMENT
  25. POTASSIUM CITRATE. [Concomitant]
     Active Substance: POTASSIUM CITRATE
  26. DHEA [Concomitant]
     Active Substance: PRASTERONE
     Dosage: 1 DF, QD
     Route: 048
  27. DIOVAN [Concomitant]
     Active Substance: VALSARTAN
  28. LIPITOR [Concomitant]
     Active Substance: ATORVASTATIN CALCIUM
     Dosage: 1 DF, QD
     Route: 048
  29. VITAMINS [Concomitant]
     Active Substance: VITAMINS
  30. DIOVAN [Concomitant]
     Active Substance: VALSARTAN
     Dosage: 80 MG, BID
     Route: 048
  31. PROTONIX [Concomitant]
     Active Substance: PANTOPRAZOLE SODIUM
     Indication: GASTROOESOPHAGEAL REFLUX DISEASE
     Dosage: 1 DF, QD
     Route: 048

REACTIONS (13)
  - Diarrhoea [Unknown]
  - Peripheral swelling [Not Recovered/Not Resolved]
  - Pain [Recovered/Resolved]
  - Stress fracture [Not Recovered/Not Resolved]
  - Neck pain [Not Recovered/Not Resolved]
  - Spinal osteoarthritis [Unknown]
  - Foot fracture [Unknown]
  - Hypothyroidism [Unknown]
  - Pulmonary granuloma [Unknown]
  - Off label use [Unknown]
  - Hypomagnesaemia [Unknown]
  - Pain in extremity [Unknown]
  - Abdominal pain lower [Unknown]

NARRATIVE: CASE EVENT DATE: 20130628
